FAERS Safety Report 25965537 (Version 2)
Quarter: 2025Q4

REPORT INFORMATION
  Report Type: Spontaneous
  Country: US (occurrence: US)
  Receive Date: 20251027
  Receipt Date: 20251124
  Transmission Date: 20260118
  Serious: No
  Sender: SANOFI AVENTIS
  Company Number: US-SA-2025SA316588

PATIENT
  Age: 47 Year
  Sex: Male
  Weight: 93.18 kg

DRUGS (1)
  1. DUPIXENT [Suspect]
     Active Substance: DUPILUMAB
     Indication: Asthma
     Dosage: 300 MG, QOW
     Route: 058
     Dates: end: 202510

REACTIONS (5)
  - Nasal disorder [Unknown]
  - Blister [Unknown]
  - Furuncle [Unknown]
  - Epistaxis [Unknown]
  - Rosacea [Unknown]
